FAERS Safety Report 26131322 (Version 1)
Quarter: 2025Q4

REPORT INFORMATION
  Report Type: Spontaneous
  Country: US (occurrence: None)
  Receive Date: 20251205
  Receipt Date: 20251205
  Transmission Date: 20260118
  Serious: Yes (Hospitalization)
  Sender: FDA-CTU
  Company Number: None

PATIENT
  Age: 55 Year
  Sex: Female

DRUGS (1)
  1. KISQALI [Suspect]
     Active Substance: RIBOCICLIB SUCCINATE
     Indication: Breast cancer female
     Dosage: 400 MG  1 TIME A DAY ORAL ?
     Route: 048
     Dates: start: 20250604

REACTIONS (1)
  - Aspiration pleural cavity [None]

NARRATIVE: CASE EVENT DATE: 20251124
